FAERS Safety Report 5408400-8 (Version None)
Quarter: 2007Q3

REPORT INFORMATION
  Report Type: 
  Country: None (occurrence: None)
  Receive Date: 20070806
  Receipt Date: 20070726
  Transmission Date: 20080115
  Serious: Yes (Hospitalization)
  Sender: FDA-Public Use
  Company Number: 2007SP015355

PATIENT
  Sex: Male

DRUGS (2)
  1. BETAMETHASONE DIPROPIONATE [Suspect]
     Indication: OTITIS EXTERNA
     Dosage: AUR
     Route: 001
     Dates: start: 20060501, end: 20070401
  2. INSULIN [Concomitant]

REACTIONS (9)
  - AURAL POLYP [None]
  - EAR INFECTION [None]
  - EXTERNAL EAR DISORDER [None]
  - JOINT DESTRUCTION [None]
  - NECROSIS [None]
  - OTITIS EXTERNA [None]
  - POST PROCEDURAL COMPLICATION [None]
  - PSEUDOMONAS INFECTION [None]
  - TYMPANIC MEMBRANE PERFORATION [None]
